FAERS Safety Report 24585568 (Version 11)
Quarter: 2025Q2

REPORT INFORMATION
  Report Type: Report from Study
  Country: US (occurrence: US)
  Receive Date: 20241106
  Receipt Date: 20250613
  Transmission Date: 20250716
  Serious: No
  Sender: SUNOVION
  Company Number: US-SUMITOMO PHARMA SWITZERLAND GMBH-2024SPA004581

PATIENT

DRUGS (16)
  1. ORGOVYX [Suspect]
     Active Substance: RELUGOLIX
     Indication: Prostate cancer
     Dosage: 360 MG, SINGLE
     Route: 048
     Dates: start: 20241023, end: 20241023
  2. ORGOVYX [Suspect]
     Active Substance: RELUGOLIX
     Dosage: 120 MG, QD
     Route: 048
     Dates: start: 20241024
  3. GEMTESA [Suspect]
     Active Substance: VIBEGRON
     Indication: Product used for unknown indication
     Route: 065
  4. ATORVASTATIN [Concomitant]
     Active Substance: ATORVASTATIN
     Route: 065
  5. COLACE [Concomitant]
     Active Substance: DOCUSATE SODIUM
     Route: 065
  6. LEVOTHYROXINE [Concomitant]
     Active Substance: LEVOTHYROXINE
     Route: 065
  7. VITAMINS [Concomitant]
     Active Substance: VITAMINS
     Route: 065
  8. TELMISARTAN [Concomitant]
     Active Substance: TELMISARTAN
     Route: 065
  9. HYDROCHLOROTHIAZIDE [Concomitant]
     Active Substance: HYDROCHLOROTHIAZIDE
     Route: 065
  10. FOSFOMYCIN TROMETHAMINE [Concomitant]
     Active Substance: FOSFOMYCIN TROMETHAMINE
     Route: 065
  11. CHOLESTYRAMINE [Concomitant]
     Active Substance: CHOLESTYRAMINE
     Route: 048
  12. VITAMINS [Concomitant]
     Active Substance: VITAMINS
     Route: 065
  13. SALINE NASAL [Concomitant]
     Active Substance: SODIUM CHLORIDE
     Route: 065
  14. Maalox multi symptom [Concomitant]
     Route: 065
  15. Max [Concomitant]
     Route: 065
  16. TYLENOL EXTRA STRENGTH [Concomitant]
     Active Substance: ACETAMINOPHEN
     Route: 065

REACTIONS (17)
  - Pain [Unknown]
  - Tooth infection [Unknown]
  - Pruritus [Unknown]
  - Dry skin [Unknown]
  - Micturition urgency [Unknown]
  - Pollakiuria [Unknown]
  - Pain in jaw [Unknown]
  - Feeling abnormal [Unknown]
  - Frequent bowel movements [Not Recovered/Not Resolved]
  - Headache [Unknown]
  - Rash [Unknown]
  - Asthenia [Recovered/Resolved]
  - Diarrhoea [Unknown]
  - Arthralgia [Not Recovered/Not Resolved]
  - Fatigue [Unknown]
  - Myalgia [Unknown]
  - Constipation [Unknown]

NARRATIVE: CASE EVENT DATE: 20241023
